FAERS Safety Report 9619468 (Version 1)
Quarter: 2013Q4

REPORT INFORMATION
  Report Type: Report from Study
  Country: DE (occurrence: DE)
  Receive Date: 20131014
  Receipt Date: 20131014
  Transmission Date: 20140711
  Serious: Yes (Congenital Anomaly, Other)
  Sender: FDA-Public Use
  Company Number: DE-B.I. PHARMACEUTICALS,INC./RIDGEFIELD-2013-BI-32049GD

PATIENT
  Sex: 0

DRUGS (12)
  1. CLONIDINE [Suspect]
     Indication: EXPOSURE DURING PREGNANCY
     Route: 064
  2. ALLOPURINOL [Suspect]
     Indication: EXPOSURE DURING PREGNANCY
     Route: 064
  3. ALPHA-METHYLDOPA [Concomitant]
     Indication: EXPOSURE DURING PREGNANCY
     Route: 064
  4. METOPROLOL [Concomitant]
     Indication: EXPOSURE DURING PREGNANCY
     Route: 064
  5. MOXONIDINE [Concomitant]
     Indication: EXPOSURE DURING PREGNANCY
     Route: 064
  6. FUROSEMIDE [Concomitant]
     Indication: EXPOSURE DURING PREGNANCY
     Route: 064
  7. DARBEPOETIN ALFA [Concomitant]
     Indication: EXPOSURE DURING PREGNANCY
     Route: 064
  8. DANAPAROID [Concomitant]
     Indication: EXPOSURE DURING PREGNANCY
     Route: 064
  9. ENOXAPARINE [Concomitant]
     Indication: EXPOSURE DURING PREGNANCY
     Route: 064
  10. CORTICOSTEROIDS [Concomitant]
     Indication: EXPOSURE DURING PREGNANCY
     Route: 064
  11. COLECALCIFEROL [Concomitant]
     Indication: EXPOSURE DURING PREGNANCY
     Route: 064
  12. ALFACALCIDOL [Concomitant]
     Indication: EXPOSURE DURING PREGNANCY
     Route: 064

REACTIONS (4)
  - Atrial septal defect [Unknown]
  - Patent ductus arteriosus [Unknown]
  - Umbilical hernia [Unknown]
  - Premature baby [Unknown]
